FAERS Safety Report 6280114-4 (Version None)
Quarter: 2009Q3

REPORT INFORMATION
  Report Type: 
  Country: None (occurrence: None)
  Receive Date: 20090723
  Receipt Date: 20090714
  Transmission Date: 20100115
  Serious: Yes (Hospitalization, Other)
  Sender: FDA-Public Use
  Company Number: US-ABBOTT-09P-163-0585076-00

PATIENT
  Sex: Female
  Weight: 87.9 kg

DRUGS (11)
  1. RITONAVIR SOFT GELATIN CAPSULES [Suspect]
     Indication: HIV INFECTION
     Route: 048
     Dates: end: 20090701
  2. TRUVADA [Concomitant]
     Indication: HIV INFECTION
     Dates: end: 20090701
  3. FOSAMAX [Concomitant]
     Indication: DRUG USE FOR UNKNOWN INDICATION
  4. CALCIUM [Concomitant]
     Indication: DRUG USE FOR UNKNOWN INDICATION
  5. BUSPAR [Concomitant]
     Indication: ANXIETY
  6. PEPCID [Concomitant]
     Indication: DRUG USE FOR UNKNOWN INDICATION
  7. NEURONTIN [Concomitant]
     Indication: PAIN
  8. DURAGESIC-100 [Concomitant]
     Indication: PAIN
     Route: 062
  9. ATIVAN [Concomitant]
     Indication: ANXIETY
  10. NIFEDIPINE [Concomitant]
     Indication: DRUG USE FOR UNKNOWN INDICATION
  11. EFFEXOR [Concomitant]
     Indication: DEPRESSION

REACTIONS (5)
  - PARALYSIS [None]
  - PNEUMONIA [None]
  - POLYNEUROPATHY [None]
  - RESPIRATORY FAILURE [None]
  - WHEELCHAIR USER [None]
